FAERS Safety Report 24384501 (Version 1)
Quarter: 2024Q3

REPORT INFORMATION
  Report Type: Spontaneous
  Country: US (occurrence: None)
  Receive Date: 20240930
  Receipt Date: 20240930
  Transmission Date: 20241016
  Serious: Yes (Hospitalization)
  Sender: Public
  Company Number: None

PATIENT
  Age: 67 Year
  Sex: Male
  Weight: 117 kg

DRUGS (1)
  1. OZEMPIC [Suspect]
     Active Substance: SEMAGLUTIDE
     Indication: Weight decreased
     Dosage: OTHER QUANTITY : 0.25 MILLIGRAM PER DOSE?OTHER FREQUENCY : WEEKLY?OTHER ROUTE : SUBCUTANEOUS INJECTI
     Route: 050
     Dates: start: 20240829, end: 20240901

REACTIONS (7)
  - Fall [None]
  - Acute kidney injury [None]
  - Colitis [None]
  - Abdominal pain [None]
  - Mucous stools [None]
  - Eating disorder [None]
  - Weight decreased [None]

NARRATIVE: CASE EVENT DATE: 20240901
